FAERS Safety Report 23545610 (Version 1)
Quarter: 2024Q1

REPORT INFORMATION
  Report Type: Spontaneous
  Country: US (occurrence: None)
  Receive Date: 20240219
  Receipt Date: 20240219
  Transmission Date: 20240410
  Serious: No
  Sender: FDA-Public Use
  Company Number: None

PATIENT
  Age: 66 Year
  Sex: Female
  Weight: 97.52 kg

DRUGS (1)
  1. ORENCIA [Suspect]
     Active Substance: ABATACEPT
     Indication: Rheumatoid arthritis
     Dosage: INFUSE 1000MG INTRAVENOUSLY OVER 1 HOUR AT WEEK 0.2 AND 4 AS DIRECTED.?
     Route: 042
     Dates: start: 202104

REACTIONS (2)
  - Urinary tract infection [None]
  - Therapy interrupted [None]
